FAERS Safety Report 8956026 (Version 1)
Quarter: 2012Q4

REPORT INFORMATION
  Report Type: 
  Country: BR (occurrence: BR)
  Receive Date: 20121210
  Receipt Date: 20121210
  Transmission Date: 20130627
  Serious: Yes (Other)
  Sender: FDA-Public Use
  Company Number: BR-AMGEN-BRASP2012078328

PATIENT
  Age: 51 Year
  Sex: Female
  Weight: 74 kg

DRUGS (10)
  1. ENBREL [Suspect]
     Indication: ANKYLOSING SPONDYLITIS
     Dosage: 50 mg, weekly
     Route: 058
     Dates: start: 2011, end: 201207
  2. ATORVASTATIN [Concomitant]
     Dosage: UNK
  3. LIPITOR [Concomitant]
     Dosage: UNK
  4. SUSTRATE [Concomitant]
     Dosage: UNK
  5. GABAPENTIN [Concomitant]
     Dosage: UNK
  6. SOMALGIN [Concomitant]
     Dosage: UNK
  7. DILTIAZEM [Concomitant]
     Dosage: UNK
  8. CYMBALTA [Concomitant]
     Dosage: UNK
  9. IMMUNOGLOBULINS [Concomitant]
     Dosage: UNK
  10. CYCLOPHOSPHAMIDE [Concomitant]
     Dosage: UNK

REACTIONS (2)
  - Polyneuropathy [Unknown]
  - Cardiac disorder [Unknown]
